FAERS Safety Report 13245852 (Version 1)
Quarter: 2017Q1

REPORT INFORMATION
  Report Type: Spontaneous
  Country: US (occurrence: US)
  Receive Date: 20170217
  Receipt Date: 20170217
  Transmission Date: 20170428
  Serious: Yes (Death)
  Sender: FDA-Public Use
  Company Number: US-ROCHE-1893917

PATIENT
  Age: 60 Year
  Sex: Female

DRUGS (2)
  1. KLONOPIN [Suspect]
     Active Substance: CLONAZEPAM
     Indication: ANXIETY
     Dosage: 1 TABLET BEFORE BEDTIME DAILY ;ONGOING: NO
     Route: 048
  2. KLONOPIN [Interacting]
     Active Substance: CLONAZEPAM
     Indication: SLEEP DISORDER

REACTIONS (3)
  - Respiratory arrest [Fatal]
  - Drug interaction [Fatal]
  - Arthralgia [Unknown]

NARRATIVE: CASE EVENT DATE: 20110427
